FAERS Safety Report 5907697-5 (Version None)
Quarter: 2008Q4

REPORT INFORMATION
  Report Type: 
  Country: None (occurrence: None)
  Receive Date: 20081003
  Receipt Date: 20030122
  Transmission Date: 20090506
  Serious: Yes (Death)
  Sender: FDA-Public Use
  Company Number: JP-ROCHE-329981

PATIENT
  Age: 61 Year
  Sex: Male

DRUGS (3)
  1. TAMIFLU [Suspect]
     Route: 048
     Dates: start: 20030114, end: 20030117
  2. EUGLUCON [Concomitant]
     Route: 048
  3. HALOPERIDOL [Concomitant]
     Route: 048

REACTIONS (4)
  - ARRHYTHMIA [None]
  - BLOOD GLUCOSE INCREASED [None]
  - CEREBROVASCULAR ACCIDENT [None]
  - FALL [None]
